FAERS Safety Report 17022565 (Version 1)
Quarter: 2019Q4

REPORT INFORMATION
  Report Type: Spontaneous
  Country: CA (occurrence: CA)
  Receive Date: 20191112
  Receipt Date: 20191112
  Transmission Date: 20200122
  Serious: Yes (Hospitalization, Other)
  Sender: FDA-Public Use
  Company Number: CA-TEVA-2019-CA-1134400

PATIENT
  Age: 40 Year
  Sex: Female
  Weight: 165 kg

DRUGS (1)
  1. TOPIRAMATE. [Suspect]
     Active Substance: TOPIRAMATE
     Indication: MIGRAINE
     Dosage: 50 MILLIGRAM DAILY;
     Route: 048

REACTIONS (4)
  - Angle closure glaucoma [Recovered/Resolved]
  - Vomiting [Recovered/Resolved]
  - Blindness [Recovered/Resolved]
  - Headache [Recovered/Resolved]
